FAERS Safety Report 5074267-3 (Version None)
Quarter: 2006Q3

REPORT INFORMATION
  Report Type: 
  Country: None (occurrence: None)
  Receive Date: 20060714
  Receipt Date: 20060315
  Transmission Date: 20061208
  Serious: No
  Sender: FDA-Public Use
  Company Number: 2006SP000832

PATIENT
  Age: 74 Year
  Sex: Female
  Weight: 48.9885 kg

DRUGS (4)
  1. LUNESTA [Suspect]
     Indication: INSOMNIA
     Dosage: SEE IMAGE
     Dates: start: 20060101
  2. ZOLOFT [Concomitant]
  3. PREVACID [Concomitant]
  4. NAPROSYN [Concomitant]

REACTIONS (2)
  - DRUG INEFFECTIVE [None]
  - MIDDLE INSOMNIA [None]
